FAERS Safety Report 10772032 (Version 3)
Quarter: 2016Q1

REPORT INFORMATION
  Report Type: Report from Study
  Country: BR (occurrence: BR)
  Receive Date: 20150206
  Receipt Date: 20160111
  Transmission Date: 20160525
  Serious: Yes (Hospitalization, Other)
  Sender: FDA-Public Use
  Company Number: BR-ABBVIE-10P-020-0671685-00

PATIENT
  Age: 53 Year
  Sex: Female
  Weight: 83 kg

DRUGS (16)
  1. HUMIRA [Suspect]
     Active Substance: ADALIMUMAB
     Route: 058
     Dates: start: 20110204, end: 201508
  2. PREDNISONE. [Concomitant]
     Active Substance: PREDNISONE
     Indication: RHEUMATOID ARTHRITIS
     Route: 048
     Dates: start: 2004
  3. ARAVA [Concomitant]
     Active Substance: LEFLUNOMIDE
     Indication: RHEUMATOID ARTHRITIS
     Route: 048
     Dates: start: 200911
  4. FOLIC ACID. [Concomitant]
     Active Substance: FOLIC ACID
     Indication: ANAL ABSCESS
  5. GLIFAGE [Concomitant]
     Active Substance: METFORMIN HYDROCHLORIDE
     Indication: BLOOD PRESSURE ABNORMAL
  6. MELOXICAM. [Concomitant]
     Active Substance: MELOXICAM
     Indication: RHEUMATOID ARTHRITIS
     Route: 048
     Dates: end: 2015
  7. ARTROLIVE [Concomitant]
     Active Substance: CHONDROITIN SULFATE (BOVINE)\GLUCOSAMINE SULFATE
     Indication: OSTEOARTHRITIS
     Route: 048
     Dates: start: 2013
  8. CALCIUM + VITAMIN D [Concomitant]
     Active Substance: CALCIUM\VITAMIN D
     Indication: MINERAL SUPPLEMENTATION
     Route: 048
     Dates: start: 2007
  9. PREDNISONE. [Concomitant]
     Active Substance: PREDNISONE
     Indication: PAIN
     Dosage: IN THE MORNING
     Route: 048
     Dates: start: 2014
  10. GLIFAGE [Concomitant]
     Active Substance: METFORMIN HYDROCHLORIDE
     Indication: BLOOD GLUCOSE ABNORMAL
     Dosage: 1 TBL AT LUNCH AND 1 AT DINNER
     Route: 048
     Dates: start: 201401
  11. VITAMIN D [Concomitant]
     Active Substance: CHOLECALCIFEROL
     Indication: BONE DISORDER
     Route: 048
     Dates: start: 201407
  12. HUMIRA [Suspect]
     Active Substance: ADALIMUMAB
     Indication: RHEUMATOID ARTHRITIS
     Route: 058
     Dates: start: 20090827, end: 20110114
  13. MELOXICAM. [Concomitant]
     Active Substance: MELOXICAM
     Indication: ANTIINFLAMMATORY THERAPY
  14. FOLIC ACID. [Concomitant]
     Active Substance: FOLIC ACID
     Indication: IMMUNE SYSTEM DISORDER
     Route: 048
     Dates: start: 201103
  15. ZETIA [Concomitant]
     Active Substance: EZETIMIBE
     Indication: BLOOD CHOLESTEROL ABNORMAL
     Route: 048
     Dates: start: 201412
  16. TOCOFEROL [Concomitant]
     Indication: VITAMIN SUPPLEMENTATION
     Route: 048
     Dates: start: 2013

REACTIONS (24)
  - Anal abscess [Recovered/Resolved]
  - Skin cancer [Recovered/Resolved]
  - Skin cancer [Recovered/Resolved]
  - Drug intolerance [Unknown]
  - Cervix carcinoma [Recovered/Resolved]
  - Hyperkeratosis [Unknown]
  - Purulent discharge [Unknown]
  - Hypertension [Unknown]
  - Anal abscess [Recovering/Resolving]
  - Acquired claw toe [Unknown]
  - Joint range of motion decreased [Unknown]
  - Abscess [Recovered/Resolved]
  - Weight increased [Not Recovered/Not Resolved]
  - Anaesthetic complication [Recovered/Resolved]
  - Vomiting [Recovered/Resolved]
  - Weight loss poor [Unknown]
  - Vitamin D deficiency [Unknown]
  - Liver disorder [Unknown]
  - Anxiety [Unknown]
  - Squamous cell carcinoma [Unknown]
  - Arthritis [Unknown]
  - Anal abscess [Recovering/Resolving]
  - Foot deformity [Unknown]
  - Inflammation [Unknown]

NARRATIVE: CASE EVENT DATE: 2010
